FAERS Safety Report 5605982-8 (Version None)
Quarter: 2008Q1

REPORT INFORMATION
  Report Type: 
  Country: None (occurrence: None)
  Receive Date: 20080129
  Receipt Date: 20071024
  Transmission Date: 20080703
  Serious: No
  Sender: FDA-Public Use
  Company Number: US-AMGEN-US249482

PATIENT
  Sex: Male

DRUGS (3)
  1. VECTIBIX [Suspect]
     Indication: COLORECTAL CANCER
     Route: 042
     Dates: start: 20070212, end: 20070701
  2. IRINOTECAN HCL [Concomitant]
     Route: 065
  3. AVASTIN [Concomitant]
     Route: 065

REACTIONS (1)
  - GROWTH OF EYELASHES [None]
